FAERS Safety Report 7170154-5 (Version None)
Quarter: 2010Q4

REPORT INFORMATION
  Report Type: 
  Country: None (occurrence: None)
  Receive Date: 20101217
  Receipt Date: 20101209
  Transmission Date: 20110411
  Serious: Yes (Hospitalization)
  Sender: FDA-Public Use
  Company Number: US-NOVOPROD-319818

PATIENT
  Sex: Female

DRUGS (10)
  1. VICTOZA [Suspect]
     Indication: TYPE 2 DIABETES MELLITUS
     Dosage: 1.8 MG, QD
     Route: 058
     Dates: start: 20100525, end: 20101123
  2. XANAX [Concomitant]
     Indication: ANXIETY
     Dosage: UNK
  3. BENICAR [Concomitant]
     Indication: HYPERTENSION
     Dosage: UNK
  4. ATENOLOL [Concomitant]
     Indication: HYPERTENSION
     Dosage: UNK
  5. FORTAMET [Concomitant]
     Indication: TYPE 2 DIABETES MELLITUS
     Dosage: UNK
  6. INDAPAMIDE [Concomitant]
     Indication: HYPERTENSION
     Dosage: UNK
  7. TRAZODONE [Concomitant]
     Indication: DEPRESSION
     Dosage: UNK
  8. EFFEXOR [Concomitant]
     Indication: DEPRESSION
     Dosage: UNK
  9. GABAPENTIN [Concomitant]
     Indication: DIABETIC NEUROPATHY
     Dosage: UNK
  10. EVISTA [Concomitant]
     Indication: OSTEOPOROSIS
     Dosage: UNK

REACTIONS (1)
  - PANCREATITIS ACUTE [None]
